FAERS Safety Report 7860702 (Version 3)
Quarter: 2012Q4

REPORT INFORMATION
  Report Type: Report from Study
  Country: GB (occurrence: GB)
  Receive Date: 20110317
  Receipt Date: 20121012
  Transmission Date: 20130627
  Serious: Yes (Hospitalization)
  Sender: FDA-Public Use
  Company Number: GB-ELI_LILLY_AND_COMPANY-GB201103003549

PATIENT
  Age: 39 None
  Sex: Male
  Weight: 92 kg

DRUGS (2)
  1. TADALAFIL [Suspect]
     Indication: ERECTILE DYSFUNCTION
     Dosage: 20 mg, as needed
     Dates: start: 20100729
  2. CITALOPRAM [Concomitant]
     Indication: DEPRESSION
     Dates: start: 201102

REACTIONS (1)
  - Depression [Not Recovered/Not Resolved]
